FAERS Safety Report 5866010-2 (Version None)
Quarter: 2008Q3

REPORT INFORMATION
  Report Type: 
  Country: None (occurrence: None)
  Receive Date: 20080829
  Receipt Date: 20080819
  Transmission Date: 20090109
  Serious: Yes (Other)
  Sender: FDA-Public Use
  Company Number: US-PFIZER INC-2008063634

PATIENT
  Sex: Female
  Weight: 79.8 kg

DRUGS (5)
  1. LYRICA [Suspect]
     Indication: RADICULAR PAIN
     Route: 048
  2. SYNTHROID [Concomitant]
  3. ALLEGRA [Concomitant]
  4. POTASSIUM CHLORIDE [Concomitant]
  5. DYAZIDE [Concomitant]

REACTIONS (3)
  - ALDOLASE INCREASED [None]
  - BLOOD CREATINE PHOSPHOKINASE INCREASED [None]
  - RHABDOMYOLYSIS [None]
